FAERS Safety Report 21286391 (Version 1)
Quarter: 2022Q3

REPORT INFORMATION
  Report Type: Report from Study
  Country: CL (occurrence: CL)
  Receive Date: 20220902
  Receipt Date: 20220902
  Transmission Date: 20221026
  Serious: Yes (Other)
  Sender: FDA-Public Use
  Company Number: CL-BRISTOL-MYERS SQUIBB COMPANY-2022-097487

PATIENT
  Age: 52 Year
  Sex: Female

DRUGS (1)
  1. ORENCIA [Suspect]
     Active Substance: ABATACEPT
     Indication: Rheumatoid arthritis
     Dosage: FREQUENCY:7 (UNSPECIFIED UNIT)
     Route: 058

REACTIONS (2)
  - Sepsis [Recovered/Resolved]
  - Chest wall abscess [Unknown]

NARRATIVE: CASE EVENT DATE: 20211201
